FAERS Safety Report 10672937 (Version 1)
Quarter: 2014Q4

REPORT INFORMATION
  Report Type: Report from Study
  Country: IT (occurrence: IT)
  Receive Date: 20141223
  Receipt Date: 20141223
  Transmission Date: 20150529
  Serious: Yes (Hospitalization)
  Sender: FDA-Public Use
  Company Number: IT-ASTRAZENECA-2014SE96656

PATIENT
  Age: 21143 Day
  Sex: Female
  Weight: 58 kg

DRUGS (7)
  1. FULVESTRANT [Suspect]
     Active Substance: FULVESTRANT
     Indication: BREAST CANCER METASTATIC
     Dosage: 250 MG
     Route: 030
     Dates: start: 20090307, end: 20090325
  2. LAPATINIB CODE NOT BROKEN [Suspect]
     Active Substance: LAPATINIB
     Indication: BREAST CANCER METASTATIC
     Dosage: DAILY
     Route: 048
     Dates: start: 20090307, end: 20090325
  3. LYRICA [Concomitant]
     Active Substance: PREGABALIN
     Indication: PAIN
     Dates: start: 20090123
  4. PARACETAMOL [Concomitant]
     Active Substance: ACETAMINOPHEN
     Indication: PAIN
     Dates: start: 20090123
  5. EXEMESTANE. [Suspect]
     Active Substance: EXEMESTANE
     Indication: BREAST CANCER METASTATIC
     Route: 065
     Dates: start: 20090307, end: 20090325
  6. LAROXYL [Concomitant]
     Active Substance: AMITRIPTYLINE
     Indication: ANXIETY
     Dates: start: 20090123
  7. DURAGESIC [Concomitant]
     Active Substance: FENTANYL
     Indication: PAIN
     Dates: start: 20090123

REACTIONS (2)
  - Epistaxis [Recovered/Resolved]
  - Anaemia [Recovered/Resolved]

NARRATIVE: CASE EVENT DATE: 20090401
